FAERS Safety Report 19949034 (Version 1)
Quarter: 2021Q4

REPORT INFORMATION
  Report Type: Report from Study
  Country: PE (occurrence: PE)
  Receive Date: 20211013
  Receipt Date: 20211013
  Transmission Date: 20220303
  Serious: Yes (Hospitalization)
  Sender: FDA-Public Use
  Company Number: PE-NALPROPION PHARMACEUTICALS INC.-2021-014213

PATIENT

DRUGS (2)
  1. CONTRAVE [Suspect]
     Active Substance: BUPROPION HYDROCHLORIDE\NALTREXONE HYDROCHLORIDE
     Indication: Obesity
     Dosage: DOSE 8MG / 90MG (1 DF, 1 IN 1 D)
     Route: 048
     Dates: start: 20210913, end: 202109
  2. CONTRAVE [Suspect]
     Active Substance: BUPROPION HYDROCHLORIDE\NALTREXONE HYDROCHLORIDE
     Dosage: DOSE 8MG / 90MG (2 DF, 1 IN 1 D)
     Route: 048
     Dates: start: 202109, end: 2021

REACTIONS (3)
  - Suffocation feeling [Recovered/Resolved]
  - Poor quality sleep [Recovered/Resolved]
  - Dyspnoea [Recovered/Resolved]

NARRATIVE: CASE EVENT DATE: 20210930
